FAERS Safety Report 20756381 (Version 1)
Quarter: 2022Q2

REPORT INFORMATION
  Report Type: Other
  Country: None (occurrence: IR)
  Receive Date: 20220427
  Receipt Date: 20220427
  Transmission Date: 20220720
  Serious: Yes (Hospitalization, Disabling, Other)
  Sender: FDA-Public Use
  Company Number: IR-Nuvo Pharmaceuticals Inc-2128188

PATIENT
  Sex: Female

DRUGS (2)
  1. NAPROXEN [Suspect]
     Active Substance: NAPROXEN
     Indication: Viral upper respiratory tract infection
     Route: 065
  2. AZITHROMYCIN [Suspect]
     Active Substance: AZITHROMYCIN
     Route: 065

REACTIONS (5)
  - Stevens-Johnson syndrome [Unknown]
  - Vaginal obstruction [Unknown]
  - Blindness [Unknown]
  - Corneal perforation [Unknown]
  - Product use in unapproved indication [Unknown]
